FAERS Safety Report 7330643-7 (Version None)
Quarter: 2011Q1

REPORT INFORMATION
  Report Type: 
  Country: None (occurrence: None)
  Receive Date: 20110304
  Receipt Date: 20110222
  Transmission Date: 20110831
  Serious: Yes (Hospitalization)
  Sender: FDA-Public Use
  Company Number: US-RB-021894-11

PATIENT
  Age: 54 Year
  Sex: Male

DRUGS (7)
  1. PROAIR HFA [Concomitant]
  2. LIPITOR [Concomitant]
  3. ALBUTEROL [Concomitant]
  4. SINGULAIR [Concomitant]
  5. ENALDNALAPRIL [Concomitant]
  6. MUCINEX [Suspect]
     Dosage: PATIENT TOOK ONE TABLET 3 WEEKS AGO AND HAS NOT TAKEN THE PRODUCT SINCE.
     Route: 048
  7. ASPIRIN [Concomitant]

REACTIONS (1)
  - DYSPNOEA [None]
